FAERS Safety Report 4802404-1 (Version None)
Quarter: 2005Q4

REPORT INFORMATION
  Report Type: 
  Country: None (occurrence: None)
  Receive Date: 20051013
  Receipt Date: 20051003
  Transmission Date: 20060501
  Serious: Yes (Hospitalization, Other)
  Sender: FDA-Public Use
  Company Number: 2005137734

PATIENT
  Age: 47 Year
  Sex: Female

DRUGS (1)
  1. DINOPROSTONE GEL (DINOPROSTONE) [Suspect]
     Indication: LABOUR INDUCTION
     Dosage: 0.25 MG (0.25 MG, SINGLE),  VAGINAL
     Route: 067

REACTIONS (7)
  - ANAEMIA [None]
  - CAESAREAN SECTION [None]
  - DRUG EXPOSURE DURING PREGNANCY [None]
  - DYSPNOEA [None]
  - POST PROCEDURAL HAEMORRHAGE [None]
  - THROMBOCYTOPENIA [None]
  - UTERINE CONTRACTIONS ABNORMAL [None]
